FAERS Safety Report 8705789 (Version 2)
Quarter: 2013Q3

REPORT INFORMATION
  Report Type: Report from Study
  Country: US (occurrence: US)
  Receive Date: 20120803
  Receipt Date: 20130730
  Transmission Date: 20140515
  Serious: No
  Sender: FDA-Public Use
  Company Number: US-ABBOTT-12P-163-0923588-00

PATIENT
  Sex: Female
  Weight: 54.48 kg

DRUGS (5)
  1. NIASPAN (COATED) 1000MG [Suspect]
     Indication: ARTERIOSCLEROSIS
     Dosage: AT BEDTIME
     Route: 048
     Dates: start: 2011
  2. NIASPAN (COATED) 1000MG [Suspect]
     Indication: FAMILIAL RISK FACTOR
     Dosage: AT BEDTIME
     Route: 048
     Dates: end: 2011
  3. CRESTOR [Concomitant]
     Indication: ARTERIOSCLEROSIS
     Route: 048
     Dates: start: 2009
  4. ASPIRIN [Concomitant]
     Indication: PRODUCT USED FOR UNKNOWN INDICATION
     Dosage: 81MG
     Route: 048
  5. MULTIVITAMINS [Concomitant]
     Indication: PRODUCT USED FOR UNKNOWN INDICATION
     Route: 048

REACTIONS (2)
  - Myalgia [Recovered/Resolved]
  - Myalgia [Not Recovered/Not Resolved]
